FAERS Safety Report 9503158 (Version 1)
Quarter: 2013Q3

REPORT INFORMATION
  Report Type: Spontaneous
  Country: US (occurrence: US)
  Receive Date: 20130906
  Receipt Date: 20130906
  Transmission Date: 20140515
  Serious: No
  Sender: FDA-Public Use
  Company Number: US-PFIZER INC-2013254960

PATIENT
  Age: 59 Year
  Sex: Female
  Weight: 74.38 kg

DRUGS (5)
  1. XELJANZ [Suspect]
     Indication: RHEUMATOID ARTHRITIS
     Dosage: 5 MG (1 TABLET), 2X/DAY
     Route: 048
  2. PREMARIN [Concomitant]
     Dosage: 0.45 MG
  3. SYNTHROID [Concomitant]
     Dosage: 100 UG
  4. RESTASIS [Concomitant]
     Dosage: 0.05 %
  5. ATORVASTATIN [Concomitant]
     Dosage: 10 MG

REACTIONS (4)
  - Diarrhoea [Unknown]
  - Influenza [Unknown]
  - Pyrexia [Unknown]
  - Migraine with aura [Unknown]
